FAERS Safety Report 5293789-3 (Version None)
Quarter: 2007Q2

REPORT INFORMATION
  Report Type: 
  Country: None (occurrence: None)
  Receive Date: 20070404
  Receipt Date: 20070322
  Transmission Date: 20071010
  Serious: Yes (Death)
  Sender: FDA-Public Use
  Company Number: MEDI-0005517

PATIENT
  Age: 7 Month

DRUGS (1)
  1. SYNAGIS [Suspect]
     Dates: start: 20061207, end: 20061207

REACTIONS (2)
  - ASPIRATION [None]
  - VOMITING [None]
